FAERS Safety Report 4495702-5 (Version None)
Quarter: 2004Q4

REPORT INFORMATION
  Report Type: 
  Country: None (occurrence: None)
  Receive Date: 20041108
  Receipt Date: 20041011
  Transmission Date: 20050328
  Serious: Yes (Hospitalization)
  Sender: FDA-Public Use
  Company Number: IL-MERCK-0410ISR00038

PATIENT
  Age: 64 Year
  Sex: Male

DRUGS (2)
  1. VIOXX [Suspect]
     Indication: TENDON OPERATION
     Route: 048
     Dates: start: 20000928, end: 20000930
  2. VIOXX [Suspect]
     Route: 048
     Dates: start: 20000301, end: 20000301

REACTIONS (3)
  - CEREBROVASCULAR ACCIDENT [None]
  - LIMB INJURY [None]
  - VISION BLURRED [None]
